FAERS Safety Report 6060636-1 (Version None)
Quarter: 2009Q1

REPORT INFORMATION
  Report Type: 
  Country: None (occurrence: None)
  Receive Date: 20090129
  Receipt Date: 20090129
  Transmission Date: 20090719
  Serious: Yes (Life-Threatening)
  Sender: FDA-Public Use
  Company Number: None

PATIENT
  Sex: Female
  Weight: 77.1115 kg

DRUGS (5)
  1. CHANTIX [Suspect]
     Indication: SMOKING CESSATION THERAPY
     Dosage: 1 MG 2 TIMES DAILY 2 TIMES DAILY
     Dates: start: 20090112
  2. CHANTIX [Suspect]
     Indication: SMOKING CESSATION THERAPY
     Dosage: 1 MG 2 TIMES DAILY 2 TIMES DAILY
     Dates: start: 20090120
  3. ASPIRIN [Concomitant]
  4. FISH OIL [Concomitant]
  5. PROZAC [Concomitant]

REACTIONS (5)
  - ANXIETY [None]
  - DEPRESSION [None]
  - MANIA [None]
  - PALPITATIONS [None]
  - SUICIDAL IDEATION [None]
